FAERS Safety Report 6346990-1 (Version None)
Quarter: 2009Q3

REPORT INFORMATION
  Report Type: 
  Country: None (occurrence: None)
  Receive Date: 20090910
  Receipt Date: 20090903
  Transmission Date: 20100115
  Serious: Yes (Life-Threatening, Hospitalization)
  Sender: FDA-Public Use
  Company Number: FR-WYE-G04361309

PATIENT
  Sex: Female

DRUGS (2)
  1. EFFEXOR [Suspect]
     Indication: POSTPARTUM DEPRESSION
     Dosage: 75 MG 1 TIME DAILY; REPORTEDLY TAKEN REGULARLY
     Route: 048
     Dates: start: 20080201, end: 20090625
  2. DOLIPRANE [Concomitant]
     Dosage: UNTIL 2 G TOTAL DAILY; IF NEEDED
     Route: 048

REACTIONS (3)
  - BLOOD POTASSIUM DECREASED [None]
  - HEPATITIS FULMINANT [None]
  - LIPASE INCREASED [None]
